FAERS Safety Report 8985798 (Version 1)
Quarter: 2012Q4

REPORT INFORMATION
  Report Type: Report from Study
  Country: CA (occurrence: CA)
  Receive Date: 20121226
  Receipt Date: 20121226
  Transmission Date: 20130627
  Serious: Yes (Hospitalization, Other)
  Sender: FDA-Public Use
  Company Number: CA-JNJFOC-20121207333

PATIENT
  Sex: Female
  Weight: 84.82 kg

DRUGS (6)
  1. REMICADE [Suspect]
     Indication: PSORIATIC ARTHROPATHY
     Route: 042
  2. REMICADE [Suspect]
     Indication: PSORIATIC ARTHROPATHY
     Route: 042
  3. LOSEC [Concomitant]
     Indication: GASTRIC DISORDER
     Route: 065
  4. OXYCONTIN [Concomitant]
     Indication: BREAKTHROUGH PAIN
     Route: 065
  5. MORPHINE [Concomitant]
     Indication: ARTHRALGIA
     Route: 065
  6. METHOTREXATE [Concomitant]
     Route: 065

REACTIONS (6)
  - Aneurysm [Not Recovered/Not Resolved]
  - Hernia [Not Recovered/Not Resolved]
  - Aortic aneurysm rupture [Unknown]
  - Weight increased [Not Recovered/Not Resolved]
  - Gait disturbance [Not Recovered/Not Resolved]
  - Pain [Not Recovered/Not Resolved]
